FAERS Safety Report 19483601 (Version 1)
Quarter: 2021Q3

REPORT INFORMATION
  Report Type: Spontaneous
  Country: US (occurrence: US)
  Receive Date: 20210701
  Receipt Date: 20210701
  Transmission Date: 20211014
  Serious: Yes (Other)
  Sender: FDA-Public Use
  Company Number: US-ROCHE-2469971

PATIENT
  Age: 55 Year
  Sex: Male
  Weight: 94.43 kg

DRUGS (11)
  1. TOPAMAX [Concomitant]
     Active Substance: TOPIRAMATE
  2. GABAPENTIN. [Concomitant]
     Active Substance: GABAPENTIN
  3. KLONOPIN [Suspect]
     Active Substance: CLONAZEPAM
     Indication: SEIZURE
     Route: 048
     Dates: start: 2014
  4. CLONAZEPAM. [Suspect]
     Active Substance: CLONAZEPAM
     Indication: SEIZURE
     Route: 048
  5. KLONOPIN [Suspect]
     Active Substance: CLONAZEPAM
     Indication: COMPULSIONS
     Route: 048
     Dates: start: 201810
  6. CLONAZEPAM. [Suspect]
     Active Substance: CLONAZEPAM
     Indication: COMPULSIONS
  7. LEVOTHYROXINE. [Concomitant]
     Active Substance: LEVOTHYROXINE
  8. TOPIRAMATE. [Concomitant]
     Active Substance: TOPIRAMATE
     Indication: SEIZURE
     Dosage: 1.5 TABLET IN AM AND PM
     Route: 048
  9. NORTRIPTYLINE [Concomitant]
     Active Substance: NORTRIPTYLINE
     Dosage: AT BEDTIME
  10. LAMOTRIGINE. [Concomitant]
     Active Substance: LAMOTRIGINE
     Indication: SEIZURE
     Dosage: 3 TABLETS IN AM AND PM
     Route: 048
  11. DIVALPROEX SODIUM ER [Concomitant]
     Active Substance: DIVALPROEX SODIUM

REACTIONS (9)
  - Insomnia [Not Recovered/Not Resolved]
  - Aggression [Unknown]
  - Amnesia [Not Recovered/Not Resolved]
  - Chest pain [Unknown]
  - Confusional state [Not Recovered/Not Resolved]
  - Thyroid disorder [Unknown]
  - Dyspnoea [Unknown]
  - Headache [Unknown]
  - Depression [Not Recovered/Not Resolved]

NARRATIVE: CASE EVENT DATE: 2014
